FAERS Safety Report 10491291 (Version 1)
Quarter: 2014Q4

REPORT INFORMATION
  Report Type: Spontaneous
  Country: US (occurrence: US)
  Receive Date: 20141002
  Receipt Date: 20141002
  Transmission Date: 20150528
  Serious: No
  Sender: FDA-Public Use
  Company Number: US-GLAXOSMITHKLINE-A1050661A

PATIENT
  Age: 73 Year
  Sex: Female

DRUGS (2)
  1. ADVAIR HFA [Suspect]
     Active Substance: FLUTICASONE PROPIONATE\SALMETEROL XINAFOATE
     Indication: PRODUCT USED FOR UNKNOWN INDICATION
     Route: 055
     Dates: start: 20131001
  2. UNSPECIFIED TREATMENT [Suspect]
     Active Substance: UNSPECIFIED INGREDIENT
     Indication: DENTAL CLEANING
     Dates: start: 201311

REACTIONS (2)
  - Gingival swelling [Not Recovered/Not Resolved]
  - Gingival blister [Not Recovered/Not Resolved]

NARRATIVE: CASE EVENT DATE: 201311
